FAERS Safety Report 22331235 (Version 1)
Quarter: 2023Q2

REPORT INFORMATION
  Report Type: Spontaneous
  Country: CA (occurrence: CA)
  Receive Date: 20230517
  Receipt Date: 20230517
  Transmission Date: 20230722
  Serious: Yes (Hospitalization, Disabling, Other)
  Sender: FDA-Public Use
  Company Number: CA-009507513-2305CAN004648

PATIENT
  Age: 84 Year
  Sex: Male
  Weight: 83 kg

DRUGS (9)
  1. INVANZ [Suspect]
     Active Substance: ERTAPENEM SODIUM
     Indication: Wound infection staphylococcal
     Dosage: 1 GRAM, 1 EVERY 1 DAY
     Route: 042
  2. INVANZ [Suspect]
     Active Substance: ERTAPENEM SODIUM
     Indication: Wound infection pseudomonas
  3. INVANZ [Suspect]
     Active Substance: ERTAPENEM SODIUM
     Indication: Beta haemolytic streptococcal infection
  4. CEFTRIAXONE [Suspect]
     Active Substance: CEFTRIAXONE
     Indication: Wound infection pseudomonas
     Dosage: UNK
     Route: 042
  5. CIPROFLOXACIN LACTATE [Suspect]
     Active Substance: CIPROFLOXACIN LACTATE
     Indication: Wound infection staphylococcal
     Dosage: 500 MILLIGRAMS, 1 EVERY 12 HOURS
     Route: 048
  6. CIPROFLOXACIN LACTATE [Suspect]
     Active Substance: CIPROFLOXACIN LACTATE
     Indication: Wound infection pseudomonas
  7. CIPROFLOXACIN LACTATE [Suspect]
     Active Substance: CIPROFLOXACIN LACTATE
     Indication: Beta haemolytic streptococcal infection
  8. GENTAMICIN [Suspect]
     Active Substance: GENTAMICIN
     Indication: Wound infection pseudomonas
     Dosage: 160 MILLIGRAM, 1 EVERY 1 DAY
     Route: 042
  9. METRONIDAZOLE [Concomitant]
     Active Substance: METRONIDAZOLE
     Indication: Peptostreptococcus infection
     Dosage: 500 MILLIGRAM, 1 EVERY 12 HOURS
     Route: 048

REACTIONS (3)
  - Foot amputation [Unknown]
  - Osteomyelitis [Unknown]
  - Pathogen resistance [Unknown]
